FAERS Safety Report 9098547 (Version 1)
Quarter: 2013Q1

REPORT INFORMATION
  Report Type: Spontaneous
  Country: FR (occurrence: FR)
  Receive Date: 20130213
  Receipt Date: 20130213
  Transmission Date: 20140127
  Serious: Yes (Hospitalization)
  Sender: FDA-Public Use
  Company Number: PHHY2013FR014057

PATIENT
  Sex: Male

DRUGS (8)
  1. AMOXICILLIN+CLAVULANATE [Suspect]
     Route: 048
     Dates: start: 20090305, end: 20090306
  2. OFLOXACINE [Suspect]
     Route: 042
     Dates: start: 20090305, end: 20090309
  3. CEFTRIAXONE [Suspect]
     Route: 042
     Dates: start: 20090306, end: 20090309
  4. TAREG [Concomitant]
     Route: 048
     Dates: start: 20090308, end: 20090318
  5. DIAMICRON [Concomitant]
     Route: 048
  6. GLUCOPHAGE [Concomitant]
     Dates: end: 20090306
  7. SIMVASTATIN ARROW [Concomitant]
     Route: 048
     Dates: start: 20090305, end: 20090311
  8. LANTUS [Concomitant]

REACTIONS (2)
  - Cholestasis [Recovering/Resolving]
  - Hepatocellular injury [Recovering/Resolving]
